FAERS Safety Report 6795504-0 (Version None)
Quarter: 2010Q2

REPORT INFORMATION
  Report Type: 
  Country: None (occurrence: None)
  Receive Date: 20100625
  Receipt Date: 20100617
  Transmission Date: 20101027
  Serious: Yes (Hospitalization, Other)
  Sender: FDA-Public Use
  Company Number: US-AMGEN-KDL407587

PATIENT
  Sex: Female

DRUGS (1)
  1. ENBREL [Suspect]
     Indication: RHEUMATOID ARTHRITIS
     Route: 058
     Dates: start: 20010801, end: 20091225

REACTIONS (8)
  - ASTHENIA [None]
  - DIABETES MELLITUS [None]
  - GAIT DISTURBANCE [None]
  - GOUT [None]
  - INFECTION [None]
  - KNEE ARTHROPLASTY [None]
  - PAIN [None]
  - URINARY TRACT INFECTION [None]
